FAERS Safety Report 6722051-4 (Version None)
Quarter: 2010Q2

REPORT INFORMATION
  Report Type: 
  Country: None (occurrence: None)
  Receive Date: 20100512
  Receipt Date: 20100430
  Transmission Date: 20101027
  Serious: Yes (Other)
  Sender: FDA-Public Use
  Company Number: US-SANOFI-AVENTIS-2010SA025688

PATIENT
  Age: 90 Year
  Sex: Female

DRUGS (4)
  1. PLAVIX [Suspect]
     Route: 048
     Dates: start: 20090101
  2. LISINOPRIL [Concomitant]
     Indication: HYPERTENSION
  3. ASPIRIN [Concomitant]
  4. CENTRUM [Concomitant]

REACTIONS (6)
  - ABDOMINAL DISCOMFORT [None]
  - BACK INJURY [None]
  - DIZZINESS [None]
  - FALL [None]
  - LACERATION [None]
  - VERTIGO [None]
